FAERS Safety Report 5804630-1 (Version None)
Quarter: 2008Q3

REPORT INFORMATION
  Report Type: 
  Country: None (occurrence: None)
  Receive Date: 20080709
  Receipt Date: 20080627
  Transmission Date: 20090109
  Serious: Yes (Disabling)
  Sender: FDA-Public Use
  Company Number: CH-ROCHE-573148

PATIENT
  Age: 65 Year
  Sex: Male

DRUGS (5)
  1. BONIVA [Suspect]
     Indication: OSTEOPOROSIS
     Dosage: FORM: INTRAVENOUS (NOS)
     Route: 042
     Dates: start: 20070201, end: 20070401
  2. METHOTREXATE [Concomitant]
  3. DURAGESIC-100 [Concomitant]
  4. HUMIRA [Concomitant]
  5. DAFALGAN [Concomitant]

REACTIONS (1)
  - OSTEONECROSIS [None]
